FAERS Safety Report 16083439 (Version 3)
Quarter: 2019Q1

REPORT INFORMATION
  Report Type: Report from Study
  Country: US (occurrence: US)
  Receive Date: 20190318
  Receipt Date: 20190327
  Transmission Date: 20190418
  Serious: Yes (Other)
  Sender: FDA-Public Use
  Company Number: US-ASTELLAS-2019US004590

PATIENT
  Age: 82 Year
  Sex: Male

DRUGS (1)
  1. ENZALUTAMIDE [Suspect]
     Active Substance: ENZALUTAMIDE
     Indication: HORMONE-REFRACTORY PROSTATE CANCER
     Route: 048

REACTIONS (4)
  - Cardiac disorder [Unknown]
  - Fall [Unknown]
  - Salt craving [Unknown]
  - Wrist fracture [Unknown]

NARRATIVE: CASE EVENT DATE: 20190105
